FAERS Safety Report 5231718-9 (Version None)
Quarter: 2007Q1

REPORT INFORMATION
  Report Type: 
  Country: None (occurrence: None)
  Receive Date: 20070206
  Receipt Date: 20070127
  Transmission Date: 20070707
  Serious: Yes (Other)
  Sender: FDA-Public Use
  Company Number: PFIZER INC-2006151630

PATIENT
  Sex: Female
  Weight: 81.6 kg

DRUGS (5)
  1. LIPITOR [Suspect]
     Indication: BLOOD CHOLESTEROL INCREASED
     Route: 048
  2. LIPITOR [Suspect]
     Indication: HYPERLIPIDAEMIA
  3. CARDIZEM [Concomitant]
  4. COUMADIN [Concomitant]
  5. IBUPROFEN [Concomitant]

REACTIONS (7)
  - HYPOAESTHESIA [None]
  - MUSCULOSKELETAL STIFFNESS [None]
  - PAIN [None]
  - PARAESTHESIA [None]
  - POLLAKIURIA [None]
  - POLYURIA [None]
  - PROTHROMBIN TIME RATIO INCREASED [None]
